FAERS Safety Report 5948217-9 (Version None)
Quarter: 2008Q4

REPORT INFORMATION
  Report Type: 
  Country: None (occurrence: None)
  Receive Date: 20081111
  Receipt Date: 20081028
  Transmission Date: 20090506
  Serious: Yes (Other)
  Sender: FDA-Public Use
  Company Number: US-ELI_LILLY_AND_COMPANY-US200810006829

PATIENT
  Age: 85 Year
  Sex: Male

DRUGS (1)
  1. ALIMTA [Suspect]
     Indication: LUNG NEOPLASM MALIGNANT
     Dates: start: 20080808

REACTIONS (3)
  - CONSTIPATION [None]
  - HAEMORRHAGE [None]
  - POST PROCEDURAL DISCOMFORT [None]
